FAERS Safety Report 6875102-0 (Version None)
Quarter: 2010Q3

REPORT INFORMATION
  Report Type: 
  Country: None (occurrence: None)
  Receive Date: 20100727
  Receipt Date: 20071205
  Transmission Date: 20110219
  Serious: Yes (Hospitalization, Other)
  Sender: FDA-Public Use
  Company Number: US-PFIZER INC-2006079454

PATIENT
  Sex: Female
  Weight: 74.8 kg

DRUGS (1)
  1. CELEBREX [Suspect]
     Indication: ANALGESIC THERAPY
     Dosage: PRN
     Dates: start: 20010101, end: 20040101

REACTIONS (3)
  - CHEST PAIN [None]
  - HYPERTENSION [None]
  - MYOCARDIAL INFARCTION [None]
